FAERS Safety Report 7688544-0 (Version None)
Quarter: 2011Q3

REPORT INFORMATION
  Report Type: 
  Country: None (occurrence: None)
  Receive Date: 20110817
  Receipt Date: 20110817
  Transmission Date: 20111222
  Serious: Yes (Life-Threatening, Hospitalization)
  Sender: FDA-Public Use
  Company Number: None

PATIENT
  Age: 37 Year
  Sex: Female
  Weight: 81.646 kg

DRUGS (2)
  1. ZARAH [Suspect]
     Indication: PREMENSTRUAL SYNDROME
     Dosage: 1
     Route: 048
     Dates: start: 20110201, end: 20110727
  2. ZARAH [Suspect]
     Indication: MENSTRUAL CYCLE MANAGEMENT
     Dosage: 1
     Route: 048
     Dates: start: 20110201, end: 20110727

REACTIONS (1)
  - PULMONARY EMBOLISM [None]
